FAERS Safety Report 8527416 (Version 3)
Quarter: 2012Q4

REPORT INFORMATION
  Report Type: Report from Study
  Country: KR (occurrence: KR)
  Receive Date: 20120424
  Receipt Date: 20120907
  Transmission Date: 20130627
  Serious: Yes (Hospitalization)
  Sender: FDA-Public Use
  Company Number: KR-BRISTOL-MYERS SQUIBB COMPANY-16533614

PATIENT
  Age: 77 Year
  Sex: Male
  Weight: 56 kg

DRUGS (13)
  1. CISPLATIN [Suspect]
     Indication: NON-SMALL CELL LUNG CANCER STAGE IV
     Dosage: No of inf: 6 Last on 29Mar12
Discontinued on 12Jul12
     Route: 042
     Dates: start: 20111215, end: 20120329
  2. GEMCITABINE HCL [Suspect]
     Indication: LUNG CARCINOMA CELL TYPE UNSPECIFIED STAGE IV
     Dosage: No of inf 11: Last on 29Mar12.
Discontinued on 12Jul12
     Route: 042
     Dates: start: 20111215
  3. LOVASTATIN [Concomitant]
     Dates: start: 199801
  4. LOSARTAN POTASSIUM + HCTZ [Concomitant]
  5. CARBAMAZEPINE [Concomitant]
     Dates: start: 199801
  6. REBAMIPIDE [Concomitant]
     Dates: start: 199801
  7. EFONIDIPINE HCL [Concomitant]
     Dates: start: 199801
  8. MAGNESIUM OXIDE [Concomitant]
     Dates: start: 20111207
  9. CODEINE [Concomitant]
     Dates: start: 20120105
  10. AMBROXOL [Concomitant]
     Dates: start: 20120105
  11. TRANEXAMIC ACID [Concomitant]
     Dates: start: 20120105
  12. ALMAGATE [Concomitant]
     Dates: start: 20120202
  13. GABAPENTIN [Concomitant]
     Dates: start: 20120215

REACTIONS (1)
  - Hyperglycaemia [Recovered/Resolved]
